FAERS Safety Report 17133919 (Version 1)
Quarter: 2019Q4

REPORT INFORMATION
  Report Type: Spontaneous
  Country: US (occurrence: US)
  Receive Date: 20191118
  Receipt Date: 20191118
  Transmission Date: 20200122
  Serious: Yes (Hospitalization, Other)
  Sender: FDA-Public Use
  Company Number: None

PATIENT
  Sex: Female

DRUGS (11)
  1. AZITHROMYCIN ANHYDROUS. [Concomitant]
     Active Substance: AZITHROMYCIN ANHYDROUS
  2. PROMETHAZINE [Concomitant]
     Active Substance: PROMETHAZINE HYDROCHLORIDE
  3. ALBUTERNOL [Concomitant]
  4. TOPIRAMATE. [Concomitant]
     Active Substance: TOPIRAMATE
  5. VITAMIN D3 [Concomitant]
     Active Substance: CHOLECALCIFEROL
  6. COSENTYX [Suspect]
     Active Substance: SECUKINUMAB
     Indication: PSORIASIS
     Dosage: ?          OTHER DOSE:2 PENS;OTHER FREQUENCY:Q4WKS;?
     Route: 058
     Dates: start: 20191024
  7. METHYLPRED [Concomitant]
     Active Substance: METHYLPREDNISOLONE
  8. MELOXICAM. [Concomitant]
     Active Substance: MELOXICAM
  9. BENZONATE [Concomitant]
     Active Substance: BENZONATATE
  10. MONTELUKAST [Concomitant]
     Active Substance: MONTELUKAST SODIUM
  11. JUNEL FE 1/20 [Concomitant]
     Active Substance: ETHINYL ESTRADIOL\NORETHINDRONE ACETATE

REACTIONS (8)
  - Rash [None]
  - Injection site swelling [None]
  - Staphylococcal infection [None]
  - Psoriatic arthropathy [None]
  - Injection site pain [None]
  - Injection site discomfort [None]
  - Pruritus [None]
  - Ear disorder [None]
